FAERS Safety Report 8775903 (Version 1)
Quarter: 2012Q4

REPORT INFORMATION
  Report Type: 
  Country: BR (occurrence: BR)
  Receive Date: 20120910
  Receipt Date: 20120910
  Transmission Date: 20130627
  Serious: Yes (Other)
  Sender: FDA-Public Use
  Company Number: BR-ASTRAZENECA-2012SE69609

PATIENT
  Sex: Female

DRUGS (4)
  1. ANASTROZOLE [Suspect]
     Route: 048
  2. FULVESTRANT [Suspect]
     Indication: BREAST CANCER
     Route: 030
     Dates: start: 201002, end: 201005
  3. ZOLADEX [Suspect]
     Route: 058
  4. TAMOXIFEN [Suspect]
     Indication: BREAST CANCER
     Route: 048
     Dates: start: 1998, end: 2009

REACTIONS (3)
  - Metastases to bone [Unknown]
  - Hepatic neoplasm [Unknown]
  - Disease progression [Unknown]
